FAERS Safety Report 12122346 (Version 14)
Quarter: 2017Q1

REPORT INFORMATION
  Report Type: Report from Study
  Country: FR (occurrence: FR)
  Receive Date: 20160226
  Receipt Date: 20170321
  Transmission Date: 20170428
  Serious: Yes (Hospitalization, Other)
  Sender: FDA-Public Use
  Company Number: PHHO2015FR021369

PATIENT
  Age: 51 Year
  Sex: Female
  Weight: 65 kg

DRUGS (2)
  1. DABRAFENIB [Suspect]
     Active Substance: DABRAFENIB
     Indication: METASTATIC MALIGNANT MELANOMA
     Dosage: UNK
     Route: 048
     Dates: start: 20140901, end: 20160314
  2. TRAMETINIB [Suspect]
     Active Substance: TRAMETINIB
     Indication: METASTATIC MALIGNANT MELANOMA
     Dosage: CONTINUOUSLY DURING EIGHT WEEKS
     Route: 048
     Dates: start: 20140708, end: 20160313

REACTIONS (6)
  - Lung adenocarcinoma [Not Recovered/Not Resolved]
  - Lung adenocarcinoma [Recovered/Resolved]
  - Second primary malignancy [Recovered/Resolved]
  - Pulmonary sarcoidosis [Not Recovered/Not Resolved]
  - Second primary malignancy [Not Recovered/Not Resolved]
  - Pneumothorax [Recovered/Resolved]

NARRATIVE: CASE EVENT DATE: 20151218
